FAERS Safety Report 13003556 (Version 1)
Quarter: 2016Q4

REPORT INFORMATION
  Report Type: Spontaneous
  Country: US (occurrence: US)
  Receive Date: 20161206
  Receipt Date: 20161206
  Transmission Date: 20170207
  Serious: No
  Sender: FDA-Public Use
  Company Number: US-AMNEAL PHARMACEUTICALS-2016AMN00232

PATIENT
  Age: 66 Year
  Sex: Female
  Weight: 78.91 kg

DRUGS (2)
  1. LEVOTHYROXINE. [Concomitant]
     Active Substance: LEVOTHYROXINE
  2. RANITIDINE. [Suspect]
     Active Substance: RANITIDINE
     Indication: DYSPEPSIA

REACTIONS (3)
  - Product substitution [Unknown]
  - Dysgeusia [Recovered/Resolved]
  - Product coating issue [Recovered/Resolved]

NARRATIVE: CASE EVENT DATE: 20160328
